FAERS Safety Report 20616369 (Version 1)
Quarter: 2022Q1

REPORT INFORMATION
  Report Type: Spontaneous
  Country: BR (occurrence: BR)
  Receive Date: 20220321
  Receipt Date: 20220321
  Transmission Date: 20220423
  Serious: Yes (Other)
  Sender: FDA-Public Use
  Company Number: BR-ABBOTT-2022A-1346768

PATIENT
  Sex: Female

DRUGS (1)
  1. DEPAKENE [Suspect]
     Active Substance: VALPROIC ACID
     Indication: Epilepsy
     Route: 065

REACTIONS (6)
  - Abdominal discomfort [Unknown]
  - Product odour abnormal [Unknown]
  - Feeling abnormal [Unknown]
  - Epilepsy [Unknown]
  - Nausea [Unknown]
  - Drug ineffective [Unknown]
